FAERS Safety Report 7226726-2 (Version None)
Quarter: 2011Q1

REPORT INFORMATION
  Report Type: 
  Country: None (occurrence: None)
  Receive Date: 20110105
  Receipt Date: 20101223
  Transmission Date: 20110831
  Serious: Yes (Life-Threatening, Hospitalization)
  Sender: FDA-Public Use
  Company Number: 2010MA005509

PATIENT
  Age: 21 Year
  Sex: Female

DRUGS (5)
  1. FERROUS FUMARATE [Concomitant]
  2. FLUCONAZOLE [Suspect]
     Indication: CANDIDIASIS
     Dosage: 150 MG;X1;PO
     Route: 048
     Dates: start: 20101203, end: 20101203
  3. MICONAZOLE NITRATE VAGINAL CREAM, 2% (ALPHARMA) (MICONAZOLE) [Suspect]
     Indication: CANDIDIASIS
     Dosage: X1;VAG
     Route: 067
     Dates: start: 20101203, end: 20101203
  4. CETIRIZINE HCL TABLETS [Concomitant]
  5. ADCAL [Concomitant]

REACTIONS (5)
  - THROAT TIGHTNESS [None]
  - DYSPNOEA [None]
  - URTICARIA [None]
  - MALAISE [None]
  - RASH [None]
